FAERS Safety Report 5237355-4 (Version None)
Quarter: 2007Q1

REPORT INFORMATION
  Report Type: 
  Country: None (occurrence: None)
  Receive Date: 20070213
  Receipt Date: 20070201
  Transmission Date: 20070707
  Serious: Yes (Death)
  Sender: FDA-Public Use
  Company Number: US-NOVOPROD-260563

PATIENT
  Age: 30 Year
  Sex: Male

DRUGS (2)
  1. NOVOSEVEN [Suspect]
     Indication: HAEMARTHROSIS
     Dosage: UNKNOWN
     Route: 042
     Dates: start: 20061201, end: 20061201
  2. FACTOR VIII [Concomitant]
     Indication: HAEMORRHAGE

REACTIONS (1)
  - EXSANGUINATION [None]
